FAERS Safety Report 20824341 (Version 1)
Quarter: 2022Q2

REPORT INFORMATION
  Report Type: Spontaneous
  Country: BR (occurrence: BR)
  Receive Date: 20220513
  Receipt Date: 20220513
  Transmission Date: 20220720
  Serious: Yes (Life-Threatening, Other)
  Sender: FDA-Public Use
  Company Number: BR-CELLTRION INC.-2022BR005213

PATIENT

DRUGS (17)
  1. HERZUMA [Suspect]
     Active Substance: TRASTUZUMAB-PKRB
     Indication: Breast cancer female
     Dosage: UNK
     Dates: start: 20211202
  2. HERZUMA [Suspect]
     Active Substance: TRASTUZUMAB-PKRB
     Dosage: 315;6 MG EVERY 21 DAYS (6 CYCLES) SF 250ML IN 90 MINUTES
     Route: 042
     Dates: start: 20220303
  3. HERZUMA [Suspect]
     Active Substance: TRASTUZUMAB-PKRB
     Dosage: 315;6 MG EVERY 21 DAYS (6 CYCLES) SF 250ML IN 90 MINUTES
     Route: 042
     Dates: start: 20220303
  4. CARBOPLATIN [Suspect]
     Active Substance: CARBOPLATIN
     Indication: Breast cancer female
     Dosage: UNK
     Dates: start: 20211202
  5. CARBOPLATIN [Suspect]
     Active Substance: CARBOPLATIN
     Dosage: (AUC6) 506;024 MG EVERY 21 DAYS (6 CYCLES) SG 500ML IN 1 HOUR (150MG)
     Route: 042
     Dates: start: 20220303
  6. CARBOPLATIN [Suspect]
     Active Substance: CARBOPLATIN
     Dosage: (AUC6) 506;024 MG EVERY 21 DAYS (6 CYCLES) SG 500ML IN 1 HOUR (50MG)
     Route: 042
     Dates: start: 20220303
  7. PERJETA [Suspect]
     Active Substance: PERTUZUMAB
     Indication: Breast cancer female
     Dosage: UNK
     Dates: start: 20211202
  8. PERJETA [Suspect]
     Active Substance: PERTUZUMAB
     Dosage: 420 MG EVERY 21 DAYS (6 CYCLES) SF 250ML IN 30 MINUTES
     Route: 042
     Dates: start: 20220303
  9. PACLITAXEL [Suspect]
     Active Substance: PACLITAXEL
     Indication: Breast cancer female
     Dosage: UNK
     Dates: start: 20211202
  10. PACLITAXEL [Suspect]
     Active Substance: PACLITAXEL
     Dosage: 120 MG EVERY 7 DAYS (8 CYCLES) SF 250ML IN 1 HOUR (100 MG)
     Route: 042
     Dates: start: 20220317
  11. PACLITAXEL [Suspect]
     Active Substance: PACLITAXEL
     Dosage: 120 MG EVERY 7 DAYS (8 CYCLES) SF 250ML IN 1 HOUR (30 MG)
     Route: 042
     Dates: start: 20220317
  12. PANTOPRAZOLE [Concomitant]
     Active Substance: PANTOPRAZOLE
     Dosage: 40 MG/DAY
     Route: 048
  13. PATZ [Concomitant]
     Dosage: 5 MG AT NIGHT
     Route: 048
  14. PALONOSETRON [Concomitant]
     Active Substance: PALONOSETRON
     Indication: Premedication
     Dosage: 0.25 MG IV; PH
     Route: 042
  15. DEXAMETHASONE [Concomitant]
     Active Substance: DEXAMETHASONE
     Indication: Premedication
     Dosage: 12 MG EV
  16. DIPHENHYDRAMINE [Concomitant]
     Active Substance: DIPHENHYDRAMINE
     Indication: Premedication
     Dosage: 50 MG, EV
  17. GRANISETRON [Concomitant]
     Active Substance: GRANISETRON
     Indication: Premedication
     Dosage: 0;01MG/KG

REACTIONS (4)
  - Neutropenia [Recovered/Resolved]
  - Leukopenia [Recovered/Resolved]
  - Anaemia [Recovering/Resolving]
  - Intentional dose omission [Unknown]

NARRATIVE: CASE EVENT DATE: 20220323
